FAERS Safety Report 7299251-0 (Version None)
Quarter: 2011Q1

REPORT INFORMATION
  Report Type: 
  Country: None (occurrence: None)
  Receive Date: 20110217
  Receipt Date: 20110210
  Transmission Date: 20110831
  Serious: Yes (Other)
  Sender: FDA-Public Use
  Company Number: US-MERCK-1102USA01390

PATIENT
  Age: 78 Year
  Sex: Female

DRUGS (11)
  1. ALENDRONATE SODIUM [Concomitant]
     Route: 065
  2. ZOCOR [Suspect]
     Route: 048
  3. FOLIC ACID [Concomitant]
     Route: 065
  4. ASPIRIN [Concomitant]
     Route: 065
  5. GABAPENTIN [Concomitant]
     Dosage: 2X 1 1/2
     Route: 065
  6. LEVOTHYROXINE SODIUM [Concomitant]
     Route: 065
  7. LISINOPRIL [Concomitant]
     Route: 065
  8. VITAMIN D (UNSPECIFIED) [Concomitant]
     Dosage: 200 X 2
     Route: 065
  9. GLIMEPIRIDE [Concomitant]
     Route: 065
  10. CRESTOR [Concomitant]
     Route: 065
  11. OMEGA-3 MARINE TRIGLYCERIDES [Concomitant]
     Route: 065

REACTIONS (3)
  - RHABDOMYOLYSIS [None]
  - CARDIAC DISORDER [None]
  - RENAL DISORDER [None]
